FAERS Safety Report 8678690 (Version 6)
Quarter: 2013Q2

REPORT INFORMATION
  Report Type: Spontaneous
  Country: US (occurrence: US)
  Receive Date: 20120723
  Receipt Date: 20130408
  Transmission Date: 20140414
  Serious: Yes (Hospitalization, Other)
  Sender: FDA-Public Use
  Company Number: US-009507513-2012SP014009

PATIENT
  Sex: Female
  Weight: 67.12 kg

DRUGS (1)
  1. NUVARING [Suspect]
     Indication: CONTRACEPTION
     Dosage: UNK
     Route: 067
     Dates: start: 200807, end: 200909

REACTIONS (56)
  - Benign intracranial hypertension [Not Recovered/Not Resolved]
  - Cerebral thrombosis [Unknown]
  - Deep vein thrombosis [Recovering/Resolving]
  - Migraine [Not Recovered/Not Resolved]
  - Vomiting [Unknown]
  - Haemorrhagic disorder [Unknown]
  - Nervous system disorder [Unknown]
  - Phlebitis [Unknown]
  - Depression [Unknown]
  - Tonsillar disorder [Recovered/Resolved]
  - Carbuncle [Unknown]
  - Genital herpes [Unknown]
  - Drug hypersensitivity [Unknown]
  - International normalised ratio increased [Recovered/Resolved]
  - Seasonal allergy [Unknown]
  - Asthma [Unknown]
  - Gastrooesophageal reflux disease [Unknown]
  - Ventricular extrasystoles [Unknown]
  - Haemorrhoids [Unknown]
  - Restless legs syndrome [Unknown]
  - Thyroiditis [Unknown]
  - Tremor [Unknown]
  - Oropharyngeal pain [Unknown]
  - Sinusitis [Recovering/Resolving]
  - Dyspnoea [Unknown]
  - Abdominal pain [Unknown]
  - Nervousness [Unknown]
  - Neck pain [Unknown]
  - Migraine with aura [Not Recovered/Not Resolved]
  - Headache [Not Recovered/Not Resolved]
  - Hypersensitivity [Unknown]
  - Dermatitis contact [Unknown]
  - Tension headache [Unknown]
  - Anxiety [Unknown]
  - Sinusitis [Unknown]
  - Dyskinesia [Unknown]
  - Rectal haemorrhage [Recovered/Resolved]
  - Basedow^s disease [Unknown]
  - Ulcer [Unknown]
  - Knee arthroplasty [Unknown]
  - Abdominal distension [Unknown]
  - Benign intracranial hypertension [Unknown]
  - Lumbar puncture [Unknown]
  - Vomiting projectile [Recovered/Resolved]
  - Epidural blood patch [Unknown]
  - Post lumbar puncture syndrome [Recovering/Resolving]
  - Pain [Unknown]
  - Palpitations [Unknown]
  - Hormone level abnormal [Unknown]
  - Wisdom teeth removal [Unknown]
  - Lumbar puncture [Unknown]
  - Lumbar puncture [Unknown]
  - Weight loss diet [Unknown]
  - Vulvovaginal pain [Unknown]
  - Anogenital warts [Unknown]
  - Papilloedema [Not Recovered/Not Resolved]
